FAERS Safety Report 19302752 (Version 2)
Quarter: 2021Q2

REPORT INFORMATION
  Report Type: Spontaneous
  Country: US (occurrence: US)
  Receive Date: 20210525
  Receipt Date: 20210616
  Transmission Date: 20210717
  Serious: No
  Sender: FDA-Public Use
  Company Number: US-PFIZER INC-2021253639

PATIENT
  Age: 9 Month
  Sex: Female

DRUGS (1)
  1. GENOTROPIN [Suspect]
     Active Substance: SOMATROPIN
     Dosage: 0.2 MG, DAILY
     Dates: start: 20210215

REACTIONS (6)
  - Weight decreased [Unknown]
  - Device delivery system issue [Unknown]
  - Device defective [Unknown]
  - Drug dose omission by device [Unknown]
  - Device leakage [Unknown]
  - Wrong technique in device usage process [Unknown]
